FAERS Safety Report 5360285-4 (Version None)
Quarter: 2007Q2

REPORT INFORMATION
  Report Type: 
  Country: None (occurrence: None)
  Receive Date: 20070614
  Receipt Date: 20070605
  Transmission Date: 20071010
  Serious: Yes (Other)
  Sender: FDA-Public Use
  Company Number: 2006SP008927

PATIENT
  Age: 37 Year
  Sex: Female
  Weight: 88.905 kg

DRUGS (12)
  1. PEG-INTRON [Suspect]
     Indication: HEPATITIS C
     Dosage: SEE IMAGE
     Route: 058
     Dates: start: 20061201
  2. PEG-INTRON [Suspect]
     Indication: HEPATITIS C
     Dosage: SEE IMAGE
     Route: 058
     Dates: start: 20061222
  3. RIBASPHERE [Suspect]
     Indication: HEPATITIS C
     Dosage: SEE IMAGE
     Route: 048
     Dates: start: 20061201
  4. RIBASPHERE [Suspect]
     Indication: HEPATITIS C
     Dosage: SEE IMAGE
     Route: 048
     Dates: start: 20061223
  5. DICYCLOMINE [Concomitant]
  6. SEROQUEL [Concomitant]
  7. TRILEPTAL [Concomitant]
  8. CYMBALTA [Concomitant]
  9. CYCLOBENZAPRINE HCL [Concomitant]
  10. NAPROXEN [Concomitant]
  11. FOLIC ACID [Concomitant]
  12. NEXIUM [Concomitant]

REACTIONS (25)
  - ANXIETY [None]
  - ARTHRALGIA [None]
  - ASTHENIA [None]
  - BLOOD POTASSIUM DECREASED [None]
  - CHAPPED LIPS [None]
  - DEHYDRATION [None]
  - DRUG INEFFECTIVE [None]
  - DRY MOUTH [None]
  - DYSGEUSIA [None]
  - FATIGUE [None]
  - HOMICIDAL IDEATION [None]
  - HYPOAESTHESIA [None]
  - INSOMNIA [None]
  - LOSS OF CONSCIOUSNESS [None]
  - MEMORY IMPAIRMENT [None]
  - MYALGIA [None]
  - NAUSEA [None]
  - NO THERAPEUTIC RESPONSE [None]
  - ORAL PAIN [None]
  - PAIN [None]
  - PAIN IN EXTREMITY [None]
  - SELF-INJURIOUS IDEATION [None]
  - THERMAL BURN [None]
  - THROAT IRRITATION [None]
  - VOMITING [None]
